FAERS Safety Report 20417706 (Version 13)
Quarter: 2022Q4

REPORT INFORMATION
  Report Type: Report from Study
  Country: CN (occurrence: CN)
  Receive Date: 20220202
  Receipt Date: 20221130
  Transmission Date: 20230113
  Serious: Yes (Hospitalization)
  Sender: FDA-Public Use
  Company Number: CN-PFIZER INC-202200168080

PATIENT
  Age: 40 Year
  Sex: Female
  Weight: 62 kg

DRUGS (22)
  1. PALBOCICLIB [Suspect]
     Active Substance: PALBOCICLIB
     Indication: Breast cancer metastatic
     Dosage: 125 MG, 1 IN 1 D
     Route: 048
     Dates: start: 20211105, end: 20220116
  2. INAVOLISIB [Suspect]
     Active Substance: INAVOLISIB
     Indication: Breast cancer metastatic
     Dosage: UNK, 1X/DAY
     Route: 048
     Dates: start: 20211105
  3. INAVOLISIB [Suspect]
     Active Substance: INAVOLISIB
     Dosage: LAST DOSE PRIOR TO AE ON 13JAN2022: 9 MG DAILY
     Route: 048
     Dates: start: 20220113
  4. FULVESTRANT [Suspect]
     Active Substance: FULVESTRANT
     Indication: Breast cancer metastatic
     Dosage: 500 MG,1 IN 4 WK
     Route: 030
     Dates: start: 20211105
  5. FULVESTRANT [Suspect]
     Active Substance: FULVESTRANT
     Dosage: 500 MG, MONTHLY (CYCLE 3 DAY 1)
     Route: 030
     Dates: start: 20211231
  6. ZOLEDRONIC ACID [Concomitant]
     Active Substance: ZOLEDRONIC ACID
     Indication: Prophylaxis
     Dosage: 4 MG, 1 IN 1 D (FORMULATION: LIQUID)
     Route: 042
     Dates: start: 20211231, end: 20211231
  7. ZOLEDRONIC ACID [Concomitant]
     Active Substance: ZOLEDRONIC ACID
     Indication: Resorption bone increased
  8. GOSERELIN ACETATE [Concomitant]
     Active Substance: GOSERELIN ACETATE
     Dosage: 3.6 MG,1 IN 1 M
     Route: 058
     Dates: start: 20211213, end: 20211213
  9. GOSERELIN ACETATE [Concomitant]
     Active Substance: GOSERELIN ACETATE
     Dosage: 3.6 MG,1 IN 1 M
     Route: 058
     Dates: start: 20220114, end: 20220114
  10. POTASSIUM CHLORIDE [Concomitant]
     Active Substance: POTASSIUM CHLORIDE
     Indication: Nutritional supplementation
     Dosage: 8 G,1 IN 1 D (FORMULATION: LIQUID)
     Route: 048
     Dates: start: 20220121, end: 20220121
  11. POTASSIUM CHLORIDE [Concomitant]
     Active Substance: POTASSIUM CHLORIDE
     Indication: Electrolyte imbalance
  12. POTASSIUM CHLORIDE [Concomitant]
     Active Substance: POTASSIUM CHLORIDE
     Indication: Nutritional supplementation
     Dosage: 3 G,1 IN 1 D (FORMULATION: LIQUID)
     Route: 042
     Dates: start: 20220121, end: 20220121
  13. POTASSIUM CHLORIDE [Concomitant]
     Active Substance: POTASSIUM CHLORIDE
     Indication: Electrolyte imbalance
  14. METFORMIN [Concomitant]
     Active Substance: METFORMIN HYDROCHLORIDE
     Indication: Blood glucose decreased
     Dosage: 0.5 G,1 IN 1 D
     Route: 048
     Dates: start: 20220104, end: 20220116
  15. METFORMIN [Concomitant]
     Active Substance: METFORMIN HYDROCHLORIDE
     Dosage: 0.25 G,1 IN 1 D
     Route: 048
     Dates: start: 20220123, end: 20220203
  16. ESOMEPRAZOLE SODIUM [Concomitant]
     Active Substance: ESOMEPRAZOLE SODIUM
     Dosage: 40 MG,1 IN 1 D (FORMULATION: LIQUID)
     Route: 042
     Dates: start: 20220121, end: 20220121
  17. ESOMEPRAZOLE SODIUM [Concomitant]
     Active Substance: ESOMEPRAZOLE SODIUM
     Dosage: 40 MG,1 IN 1 D (FORMULATION: LIQUID)
     Route: 042
     Dates: start: 20220122, end: 20220122
  18. DEXTROSE\SODIUM CHLORIDE [Concomitant]
     Active Substance: DEXTROSE\SODIUM CHLORIDE
     Indication: Electrolyte imbalance
     Dosage: 500 ML,1 IN 1 D
     Route: 042
     Dates: start: 20220121, end: 20220121
  19. AMINO ACIDS, SOURCE UNSPECIFIED [Concomitant]
     Active Substance: AMINO ACIDS, SOURCE UNSPECIFIED
     Indication: Electrolyte imbalance
     Dosage: 28.5 G,1 IN 1 D
     Route: 042
     Dates: start: 20220121, end: 20220121
  20. SODIUM CHLORIDE [Concomitant]
     Active Substance: SODIUM CHLORIDE
     Dosage: 3 G,1 IN 1 D
     Route: 042
     Dates: start: 20220121, end: 20220121
  21. DEXTROSE [Concomitant]
     Active Substance: DEXTROSE
     Dosage: 500 ML,2 IN 1 D
     Route: 042
     Dates: start: 20220121, end: 20220121
  22. FAT EMULSION NOS [Concomitant]
     Active Substance: EGG PHOSPHOLIPIDS\SAFFLOWER OIL\SOYBEAN OIL
     Dosage: UNK

REACTIONS (1)
  - Malaise [Recovered/Resolved]

NARRATIVE: CASE EVENT DATE: 20220111
